FAERS Safety Report 12616587 (Version 2)
Quarter: 2017Q3

REPORT INFORMATION
  Report Type: Spontaneous
  Country: US (occurrence: US)
  Receive Date: 20160802
  Receipt Date: 20170801
  Transmission Date: 20171127
  Serious: No
  Sender: FDA-Public Use
  Company Number: US-IMPAX LABORATORIES, INC-2016-IPXL-00379

PATIENT
  Sex: Male
  Weight: 107 kg

DRUGS (4)
  1. HYDROCORTISONE. [Concomitant]
     Active Substance: HYDROCORTISONE
     Indication: ANAL PRURITUS
     Dosage: UNK
     Route: 065
  2. ALBENZA [Suspect]
     Active Substance: ALBENDAZOLE
     Dosage: UNK
     Route: 065
     Dates: start: 2016
  3. ALBENZA [Suspect]
     Active Substance: ALBENDAZOLE
     Dosage: 400 MG ONCE DAILY AND AT 2 WEEKS FOR 2 DOSES
     Route: 065
     Dates: start: 20160316
  4. ALBENZA [Suspect]
     Active Substance: ALBENDAZOLE
     Indication: ENTEROBIASIS
     Dosage: UNK
     Route: 065
     Dates: start: 201602

REACTIONS (3)
  - Drug dose omission [Unknown]
  - Drug ineffective for unapproved indication [Unknown]
  - Disease recurrence [Not Recovered/Not Resolved]

NARRATIVE: CASE EVENT DATE: 2016
